FAERS Safety Report 7690294-1 (Version None)
Quarter: 2011Q3

REPORT INFORMATION
  Report Type: 
  Country: None (occurrence: None)
  Receive Date: 20110818
  Receipt Date: 20110808
  Transmission Date: 20111222
  Serious: Yes (Hospitalization)
  Sender: FDA-Public Use
  Company Number: US-ELI_LILLY_AND_COMPANY-US201105001998

PATIENT
  Sex: Female
  Weight: 57.596 kg

DRUGS (5)
  1. HUMALOG [Suspect]
     Dosage: 28 U, BID
     Dates: start: 20110505
  2. HUMALOG [Suspect]
     Indication: DIABETES MELLITUS
     Dosage: UNK
  3. HUMULIN R [Suspect]
     Indication: DIABETES MELLITUS
     Dosage: UNK, PRN
     Dates: end: 20110504
  4. INSULIN [Concomitant]
     Indication: DIABETES MELLITUS
  5. NPH INSULIN [Concomitant]
     Indication: DIABETES MELLITUS
     Dosage: UNK

REACTIONS (4)
  - FEELING ABNORMAL [None]
  - BLOOD GLUCOSE FLUCTUATION [None]
  - HOSPITALISATION [None]
  - HEADACHE [None]
